FAERS Safety Report 10759667 (Version 3)
Quarter: 2015Q3

REPORT INFORMATION
  Report Type: Report from Study
  Country: US (occurrence: US)
  Receive Date: 20150203
  Receipt Date: 20150720
  Transmission Date: 20151125
  Serious: No
  Sender: FDA-Public Use
  Company Number: US-GILEAD-2015-0134468

PATIENT
  Age: 56 Year
  Sex: Male

DRUGS (16)
  1. FISH OIL [Concomitant]
     Active Substance: FISH OIL
  2. ZOLPID [Concomitant]
  3. MIRTAZAPINE. [Concomitant]
     Active Substance: MIRTAZAPINE
  4. DULERA [Concomitant]
     Active Substance: FORMOTEROL FUMARATE DIHYDRATE\MOMETASONE FUROATE
  5. ALPRAZOLAM. [Concomitant]
     Active Substance: ALPRAZOLAM
  6. BENTYL [Concomitant]
     Active Substance: DICYCLOMINE HYDROCHLORIDE
  7. B12                                /00056201/ [Concomitant]
  8. VITAMIN B [Concomitant]
     Active Substance: VITAMIN B
  9. D3 [Concomitant]
     Active Substance: 25-HYDROXYCHOLECALCIFEROL, 5-TRANS-
  10. CARVEDILOL. [Concomitant]
     Active Substance: CARVEDILOL
  11. VITAMIN C [Concomitant]
     Active Substance: ASCORBIC ACID
  12. LEDIPASVIR/SOFOSBUVIR [Suspect]
     Active Substance: LEDIPASVIR\SOFOSBUVIR
     Indication: CHRONIC HEPATITIS C
     Dosage: 1 DF, QD
     Route: 048
     Dates: start: 20141126
  13. ASA [Concomitant]
     Active Substance: ASPIRIN
  14. CO ENZYM Q10 [Concomitant]
  15. DOXEPIN [Concomitant]
     Active Substance: DOXEPIN
  16. METFORMIN [Concomitant]
     Active Substance: METFORMIN HYDROCHLORIDE

REACTIONS (2)
  - Eosinophil count increased [Unknown]
  - Eosinophil percentage increased [Unknown]

NARRATIVE: CASE EVENT DATE: 20150106
